FAERS Safety Report 4888436-6 (Version None)
Quarter: 2006Q1

REPORT INFORMATION
  Report Type: 
  Country: None (occurrence: None)
  Receive Date: 20060119
  Receipt Date: 20060119
  Transmission Date: 20060701
  Serious: Yes (Other)
  Sender: FDA-Public Use
  Company Number: None

PATIENT
  Age: 71 Year
  Sex: Male
  Weight: 93.8946 kg

DRUGS (2)
  1. WARFARIN [Suspect]
     Indication: ATRIAL FIBRILLATION
     Dosage: 2.5 MG X 4 DAYS PER WK
  2. ASPIRIN [Suspect]
     Dosage: 5 MG 3 DAYS PER WK.

REACTIONS (5)
  - CHROMATURIA [None]
  - HAEMOPTYSIS [None]
  - INTERNATIONAL NORMALISED RATIO ABNORMAL [None]
  - PROTHROMBIN TIME ABNORMAL [None]
  - RECTAL HAEMORRHAGE [None]
